FAERS Safety Report 9106598 (Version 1)
Quarter: 2013Q1

REPORT INFORMATION
  Report Type: Spontaneous
  Country: TR (occurrence: TR)
  Receive Date: 20130221
  Receipt Date: 20130221
  Transmission Date: 20140127
  Serious: Yes (Other)
  Sender: FDA-Public Use
  Company Number: TR-CELGENEUS-161-21880-13021140

PATIENT
  Age: 72 Year
  Sex: Male

DRUGS (2)
  1. REVLIMID [Suspect]
     Indication: MYELODYSPLASTIC SYNDROME
     Route: 048
  2. REVLIMID [Suspect]
     Route: 048

REACTIONS (1)
  - Leukocytoclastic vasculitis [Not Recovered/Not Resolved]
